FAERS Safety Report 6123202-5 (Version None)
Quarter: 2009Q1

REPORT INFORMATION
  Report Type: 
  Country: None (occurrence: None)
  Receive Date: 20090318
  Receipt Date: 20081218
  Transmission Date: 20090719
  Serious: Yes (Hospitalization)
  Sender: FDA-Public Use
  Company Number: DE-AMGEN-UK338079

PATIENT
  Sex: Female

DRUGS (1)
  1. VECTIBIX [Suspect]
     Indication: COLORECTAL CANCER
     Dates: start: 20080807, end: 20080911

REACTIONS (4)
  - NASAL DISORDER [None]
  - RASH [None]
  - RASH PAPULAR [None]
  - RASH PUSTULAR [None]
